FAERS Safety Report 4928978-8 (Version None)
Quarter: 2006Q1

REPORT INFORMATION
  Report Type: 
  Country: None (occurrence: None)
  Receive Date: 20060301
  Receipt Date: 20060223
  Transmission Date: 20060701
  Serious: Yes (Hospitalization)
  Sender: FDA-Public Use
  Company Number: FR-GLAXOSMITHKLINE-B0413530A

PATIENT
  Age: 69 Year
  Sex: Male
  Weight: 80 kg

DRUGS (14)
  1. ZINNAT INJECTABLE [Suspect]
     Indication: THERAPEUTIC PROCEDURE
     Route: 030
     Dates: start: 20060126, end: 20060126
  2. TRACRIUM [Suspect]
     Indication: THERAPEUTIC PROCEDURE
     Route: 065
     Dates: start: 20060126, end: 20060126
  3. PROFENID [Suspect]
     Indication: POSTOPERATIVE CARE
     Route: 048
     Dates: start: 20060126, end: 20060126
  4. SUFENTA [Suspect]
     Indication: THERAPEUTIC PROCEDURE
     Route: 065
     Dates: start: 20060126, end: 20060126
  5. SEVORANE [Suspect]
     Indication: THERAPEUTIC PROCEDURE
     Route: 065
     Dates: start: 20060126, end: 20060126
  6. DIPRIVAN [Suspect]
     Indication: THERAPEUTIC PROCEDURE
     Route: 065
     Dates: start: 20060126, end: 20060126
  7. PRIMPERAN TAB [Concomitant]
     Indication: POSTOPERATIVE CARE
     Route: 065
     Dates: start: 20060126
  8. SPASFON [Concomitant]
     Indication: POSTOPERATIVE CARE
     Route: 065
     Dates: start: 20060126
  9. PERFALGAN [Concomitant]
     Indication: POSTOPERATIVE CARE
     Route: 065
     Dates: start: 20060126
  10. ACUPAN [Concomitant]
     Indication: POSTOPERATIVE CARE
     Route: 065
     Dates: start: 20060126
  11. ZOXAN LP (DOXAZOSINE) [Concomitant]
     Route: 065
  12. PIASCLEDINE [Concomitant]
     Route: 065
  13. ANTACID + SIMETHICONE [Concomitant]
     Route: 065
  14. PIRACETAM [Concomitant]
     Route: 065

REACTIONS (7)
  - ANAEMIA [None]
  - ASTHENIA [None]
  - OEDEMA PERIPHERAL [None]
  - PALLOR [None]
  - PRURITUS [None]
  - URTICARIA [None]
  - WEIGHT DECREASED [None]
